FAERS Safety Report 5066653-2 (Version None)
Quarter: 2006Q3

REPORT INFORMATION
  Report Type: 
  Country: None (occurrence: None)
  Receive Date: 20060801
  Receipt Date: 20060727
  Transmission Date: 20061208
  Serious: Yes (Hospitalization)
  Sender: FDA-Public Use
  Company Number: 2006CG01288

PATIENT
  Age: 77 Year
  Sex: Female

DRUGS (6)
  1. OMEPRAZOLE [Suspect]
     Indication: GASTROINTESTINAL ULCER
     Route: 048
  2. CORDARONE [Suspect]
     Route: 048
  3. DEPAKENE [Suspect]
     Indication: EPILEPSY
     Route: 048
  4. MODOPAR [Suspect]
     Indication: PARKINSON'S DISEASE
     Route: 048
  5. NEORECORMON [Suspect]
     Indication: ANAEMIA
     Route: 058
  6. PLAVIX [Suspect]
     Indication: PROPHYLAXIS
     Route: 048

REACTIONS (1)
  - HYPOTHYROIDISM [None]
